FAERS Safety Report 14079505 (Version 1)
Quarter: 2017Q4

REPORT INFORMATION
  Report Type: Spontaneous
  Country: DE (occurrence: DE)
  Receive Date: 20171012
  Receipt Date: 20171012
  Transmission Date: 20180321
  Serious: Yes (Other)
  Sender: FDA-Public Use
  Company Number: DE-JNJFOC-20171003381

PATIENT
  Age: 57 Year
  Sex: Male

DRUGS (2)
  1. DUROGESIC SMAT [Suspect]
     Active Substance: FENTANYL
     Indication: PRODUCT USED FOR UNKNOWN INDICATION
     Route: 062
  2. DUROGESIC SMAT [Suspect]
     Active Substance: FENTANYL
     Indication: PRODUCT USED FOR UNKNOWN INDICATION
     Route: 062

REACTIONS (10)
  - Constipation [Unknown]
  - Decreased appetite [Unknown]
  - Sleep disorder [Unknown]
  - Feeling of body temperature change [Unknown]
  - Erythema [Unknown]
  - Sleep apnoea syndrome [Unknown]
  - Hyperhidrosis [Unknown]
  - Application site dryness [Unknown]
  - Pruritus [Unknown]
  - Dyspnoea [Unknown]
